FAERS Safety Report 22090764 (Version 1)
Quarter: 2023Q1

REPORT INFORMATION
  Report Type: Report from Study
  Country: CA (occurrence: CA)
  Receive Date: 20230313
  Receipt Date: 20230313
  Transmission Date: 20230418
  Serious: Yes (Hospitalization, Other)
  Sender: FDA-Public Use
  Company Number: CA-ABBVIE-4338196

PATIENT
  Age: 68 Year
  Sex: Male

DRUGS (1)
  1. LUPRON DEPOT [Suspect]
     Active Substance: LEUPROLIDE ACETATE
     Indication: Prostate cancer
     Route: 030
     Dates: start: 20201013

REACTIONS (5)
  - Intensive care [Unknown]
  - Spinal cord neoplasm [Unknown]
  - Dysstasia [Unknown]
  - Rehabilitation therapy [Unknown]
  - Prostate cancer [Unknown]

NARRATIVE: CASE EVENT DATE: 20221220
